FAERS Safety Report 15999894 (Version 3)
Quarter: 2019Q2

REPORT INFORMATION
  Report Type: Spontaneous
  Country: IT (occurrence: IT)
  Receive Date: 20190225
  Receipt Date: 20190501
  Transmission Date: 20190711
  Serious: Yes (Death, Hospitalization)
  Sender: FDA-Public Use
  Company Number: IT-CELGENEUS-ITA-20190109959

PATIENT
  Age: 78 Year
  Sex: Female

DRUGS (6)
  1. REVLIMID [Suspect]
     Active Substance: LENALIDOMIDE
     Indication: MYELODYSPLASTIC SYNDROME
     Route: 048
     Dates: start: 20150109, end: 20170110
  2. ENOXAPARINE [Concomitant]
     Active Substance: ENOXAPARIN
     Indication: THROMBOPHLEBITIS SUPERFICIAL
     Dosage: 8 MILLIGRAM
     Route: 065
     Dates: start: 20150127, end: 20150224
  3. AMITRIPTILINA [Concomitant]
     Active Substance: AMITRIPTYLINE HYDROCHLORIDE
     Indication: CHRONIC GASTRITIS
     Route: 065
  4. ENOXAPARINE [Concomitant]
     Active Substance: ENOXAPARIN
     Indication: THROMBOSIS PROPHYLAXIS
     Dosage: 4 IU (INTERNATIONAL UNIT)
     Route: 065
     Dates: start: 20150225
  5. OMEPRAZOL [Concomitant]
     Active Substance: OMEPRAZOLE
     Indication: CHRONIC GASTRITIS
     Dosage: 20 MILLIGRAM
     Route: 065
  6. CLOREXIDINA [Concomitant]
     Indication: STOMATITIS
     Route: 065
     Dates: start: 201609

REACTIONS (1)
  - Transformation to acute myeloid leukaemia [Fatal]

NARRATIVE: CASE EVENT DATE: 20181010
